FAERS Safety Report 6743761-9 (Version None)
Quarter: 2010Q2

REPORT INFORMATION
  Report Type: 
  Country: None (occurrence: None)
  Receive Date: 20100526
  Receipt Date: 20100526
  Transmission Date: 20101027
  Serious: Yes (Other)
  Sender: FDA-Public Use
  Company Number: None

PATIENT
  Age: 56 Year
  Sex: Female

DRUGS (1)
  1. BONIVA [Suspect]
     Indication: OSTEOPOROSIS PROPHYLAXIS
     Dosage: 150MG MONTHLY PO
     Route: 048
     Dates: start: 20100521, end: 20100521

REACTIONS (3)
  - BONE PAIN [None]
  - MYALGIA [None]
  - PAIN [None]
